FAERS Safety Report 9426629 (Version 3)
Quarter: 2017Q2

REPORT INFORMATION
  Report Type: Spontaneous
  Country: FR (occurrence: FR)
  Receive Date: 20130730
  Receipt Date: 20170417
  Transmission Date: 20170830
  Serious: Yes (Other)
  Sender: FDA-Public Use
  Company Number: FR-009507513-1307FRA014683

PATIENT
  Age: 55 Year
  Sex: Female

DRUGS (1)
  1. DIPROSALIC [Suspect]
     Active Substance: BETAMETHASONE DIPROPIONATE
     Indication: PRODUCT USED FOR UNKNOWN INDICATION
     Dosage: 3 GTT, ONCE
     Route: 047
     Dates: start: 20130516, end: 20130516

REACTIONS (3)
  - Medication error [Unknown]
  - Conjunctival hyperaemia [Unknown]
  - Incorrect route of drug administration [Unknown]

NARRATIVE: CASE EVENT DATE: 20130516
